FAERS Safety Report 10129600 (Version 1)
Quarter: 2014Q2

REPORT INFORMATION
  Report Type: Spontaneous
  Country: US (occurrence: None)
  Receive Date: 20140425
  Receipt Date: 20140425
  Transmission Date: 20141212
  Serious: Yes (Hospitalization)
  Sender: FDA-Public Use
  Company Number: None

PATIENT
  Age: 66 Year
  Sex: Female
  Weight: 66.1 kg

DRUGS (8)
  1. IPILIMUMAB [Suspect]
  2. VALSARTAN [Concomitant]
  3. LEVOTHYROXINE [Concomitant]
  4. GABAPENTINE [Concomitant]
  5. ZOLPIDEM [Concomitant]
  6. AMBIEN [Concomitant]
  7. XANAX [Concomitant]
  8. CETIRIZINE [Concomitant]

REACTIONS (3)
  - Nausea [None]
  - Vomiting [None]
  - Cholecystitis [None]
